FAERS Safety Report 7499298-5 (Version None)
Quarter: 2011Q2

REPORT INFORMATION
  Report Type: 
  Country: None (occurrence: None)
  Receive Date: 20110524
  Receipt Date: 20110210
  Transmission Date: 20111010
  Serious: Yes (Hospitalization, Other)
  Sender: FDA-Public Use
  Company Number: A0913133A

PATIENT

DRUGS (1)
  1. ARZERRA [Suspect]
     Dosage: 300MG SINGLE DOSE
     Route: 042

REACTIONS (2)
  - INFECTION [None]
  - NEUTROPENIA [None]
